FAERS Safety Report 24432669 (Version 1)
Quarter: 2024Q4

REPORT INFORMATION
  Report Type: Spontaneous
  Country: US (occurrence: US)
  Receive Date: 20241014
  Receipt Date: 20241014
  Transmission Date: 20250114
  Serious: No
  Sender: TORRENT PHARMA INC.
  Company Number: US-TORRENT-00013789

PATIENT
  Age: 52 Year
  Sex: Male

DRUGS (1)
  1. DICHLORPHENAMIDE [Suspect]
     Active Substance: DICHLORPHENAMIDE
     Indication: Myotonia
     Dosage: UNKNOWN
     Route: 065

REACTIONS (3)
  - Malaise [Recovered/Resolved]
  - Loss of personal independence in daily activities [Recovered/Resolved]
  - Lethargy [Recovered/Resolved]
